FAERS Safety Report 6181542-8 (Version None)
Quarter: 2009Q2

REPORT INFORMATION
  Report Type: 
  Country: None (occurrence: None)
  Receive Date: 20090506
  Receipt Date: 20090504
  Transmission Date: 20091009
  Serious: Yes (Death)
  Sender: FDA-Public Use
  Company Number: US-ASTRAZENECA-2009UW09617

PATIENT
  Age: 90 Year
  Sex: Male

DRUGS (1)
  1. SEROQUEL [Suspect]
     Indication: INSOMNIA
     Dosage: 25 MG TO 50 MG
     Route: 048
     Dates: start: 20040601, end: 20080301

REACTIONS (2)
  - DEATH [None]
  - TYPE 1 DIABETES MELLITUS [None]
